FAERS Safety Report 9669842 (Version 1)
Quarter: 2013Q4

REPORT INFORMATION
  Report Type: Spontaneous
  Country: US (occurrence: None)
  Receive Date: 20131104
  Receipt Date: 20131104
  Transmission Date: 20140711
  Serious: Yes (Hospitalization)
  Sender: FDA-Public Use
  Company Number: None

PATIENT
  Age: 28 Year
  Sex: Male
  Weight: 63.41 kg

DRUGS (12)
  1. BORTEZOMIB [Suspect]
     Indication: GRAFT VERSUS HOST DISEASE
     Dosage: 1.08 MG SQ X1
     Route: 058
     Dates: start: 20131022
  2. MEPRON [Concomitant]
  3. DEXAMETHASONE [Concomitant]
  4. MARINOL [Concomitant]
  5. BACTROBAN [Concomitant]
  6. MAXITROL OPTHAL SOL [Concomitant]
  7. PROTONIX [Concomitant]
  8. NOXAFIL [Concomitant]
  9. DELTASONE [Concomitant]
  10. RAPAMUNE [Concomitant]
  11. KENALOG [Concomitant]
  12. VALTREX [Concomitant]

REACTIONS (8)
  - Upper respiratory tract infection [None]
  - Obstructive airways disorder [None]
  - Condition aggravated [None]
  - Dyspnoea exertional [None]
  - Hypoxia [None]
  - Productive cough [None]
  - Rhinovirus infection [None]
  - Ventilation perfusion mismatch [None]
